FAERS Safety Report 8365000-8 (Version None)
Quarter: 2012Q2

REPORT INFORMATION
  Report Type: 
  Country: None (occurrence: None)
  Receive Date: 20120516
  Receipt Date: 20120514
  Transmission Date: 20120825
  Serious: Yes (Death, Hospitalization)
  Sender: FDA-Public Use
  Company Number: US-GLAXOSMITHKLINE-A0977511A

PATIENT
  Age: 95 Year
  Sex: Female

DRUGS (9)
  1. VITAMIN [Concomitant]
  2. IRON [Concomitant]
  3. POTASSIUM CHLORIDE [Concomitant]
  4. CONCURRENT MEDICATIONS [Concomitant]
  5. MAGNESIUM [Concomitant]
  6. ADVAIR DISKUS 100/50 [Suspect]
     Indication: CHRONIC OBSTRUCTIVE PULMONARY DISEASE
     Route: 055
     Dates: start: 20080101
  7. SYNTHROID [Concomitant]
  8. HEART MEDICATION [Concomitant]
  9. ASPIRIN [Concomitant]

REACTIONS (1)
  - LOBAR PNEUMONIA [None]
